FAERS Safety Report 9947313 (Version 1)
Quarter: 2014Q1

REPORT INFORMATION
  Report Type: Report from Study
  Country: US (occurrence: US)
  Receive Date: 20140303
  Receipt Date: 20140303
  Transmission Date: 20141002
  Serious: No
  Sender: FDA-Public Use
  Company Number: US-ABBVIE-13P-163-1061812-00

PATIENT
  Age: 47 Year
  Sex: Female

DRUGS (7)
  1. HUMIRA [Suspect]
     Indication: PSORIASIS
     Dates: start: 201211
  2. EFFEXOR [Concomitant]
     Indication: ANXIETY
  3. LOSARTAN [Concomitant]
     Indication: BLOOD PRESSURE
  4. LOSARTAN [Concomitant]
     Indication: BLOOD CHOLESTEROL
  5. AMLODIPINE [Concomitant]
     Indication: BLOOD PRESSURE
  6. GENERIC LIPITOR [Concomitant]
     Indication: BLOOD CHOLESTEROL
  7. GLIPIZIDE [Concomitant]
     Indication: TYPE 2 DIABETES MELLITUS

REACTIONS (1)
  - Rash generalised [Not Recovered/Not Resolved]
